FAERS Safety Report 7603944-2 (Version None)
Quarter: 2011Q3

REPORT INFORMATION
  Report Type: 
  Country: None (occurrence: None)
  Receive Date: 20110712
  Receipt Date: 20110628
  Transmission Date: 20111222
  Serious: Yes (Other)
  Sender: FDA-Public Use
  Company Number: CA-JNJFOC-20110700776

PATIENT
  Sex: Female
  Weight: 55.6 kg

DRUGS (5)
  1. REMICADE [Suspect]
     Indication: RHEUMATOID ARTHRITIS
     Route: 042
     Dates: start: 20070529
  2. SYNTHROID [Concomitant]
     Indication: HYPERTHYROIDISM
  3. ATACAND [Concomitant]
     Indication: HYPERTENSION
  4. TYLENOL (CAPLET) [Concomitant]
     Indication: ARTHRITIS
  5. METHOTREXATE [Concomitant]

REACTIONS (2)
  - ABDOMINAL PAIN [None]
  - DIARRHOEA [None]
